FAERS Safety Report 6654104-3 (Version None)
Quarter: 2010Q1

REPORT INFORMATION
  Report Type: 
  Country: None (occurrence: None)
  Receive Date: 20100324
  Receipt Date: 20100311
  Transmission Date: 20100710
  Serious: Yes (Hospitalization)
  Sender: FDA-Public Use
  Company Number: 005907

PATIENT
  Sex: Female

DRUGS (8)
  1. CERTOLIZUMAB PEGOL (CDP870) [Suspect]
     Indication: RHEUMATOID ARTHRITIS
     Dosage: (400 MG, EVERY TWO WEEKS SUBCUTANEOUS) ; (200 MG, EVERY TWO WEEKS SUBCUTANEOUS)
     Route: 058
     Dates: end: 20100106
  2. CERTOLIZUMAB PEGOL (CDP870) [Suspect]
     Indication: RHEUMATOID ARTHRITIS
     Dosage: (400 MG, EVERY TWO WEEKS SUBCUTANEOUS) ; (200 MG, EVERY TWO WEEKS SUBCUTANEOUS)
     Route: 058
     Dates: start: 20091014
  3. MOBIC [Suspect]
     Indication: RHEUMATOID ARTHRITIS
     Dosage: (10 MG, DAILY ORAL) ; (10 MG ORAL)
     Route: 048
     Dates: start: 20090916, end: 20100120
  4. MOBIC [Suspect]
     Indication: RHEUMATOID ARTHRITIS
     Dosage: (10 MG, DAILY ORAL) ; (10 MG ORAL)
     Route: 048
     Dates: start: 20100228
  5. MUCOSTA (MUCOSTA) [Suspect]
     Indication: GASTRITIS PROPHYLAXIS
     Dosage: (100 MG, DAILY ORAL) ; (100 MG ORAL)
     Route: 048
     Dates: start: 20090916, end: 20100120
  6. MUCOSTA (MUCOSTA) [Suspect]
     Indication: GASTRITIS PROPHYLAXIS
     Dosage: (100 MG, DAILY ORAL) ; (100 MG ORAL)
     Route: 048
     Dates: start: 20100228
  7. CEFCAPENE PIVOXIL HYDROCHLORIDE [Concomitant]
  8. BEECHAM'S HOT LEMON COLD REMEDY [Concomitant]

REACTIONS (9)
  - ARTHRALGIA [None]
  - ATRIOVENTRICULAR BLOCK FIRST DEGREE [None]
  - FEELING HOT [None]
  - HENOCH-SCHONLEIN PURPURA [None]
  - IMPETIGO [None]
  - OEDEMA PERIPHERAL [None]
  - PRURITUS [None]
  - RASH PUSTULAR [None]
  - SKIN EXFOLIATION [None]
